FAERS Safety Report 9078113 (Version 1)
Quarter: 2013Q1

REPORT INFORMATION
  Report Type: Spontaneous
  Country: US (occurrence: US)
  Receive Date: 20130130
  Receipt Date: 20130130
  Transmission Date: 20140127
  Serious: Yes (Hospitalization, Other)
  Sender: FDA-Public Use
  Company Number: US-TEVA-382246USA

PATIENT
  Age: 26 None
  Sex: Female

DRUGS (2)
  1. COPAXONE [Suspect]
     Indication: MULTIPLE SCLEROSIS
     Dates: start: 20100908
  2. 5 HR ENERGY DRINK [Interacting]

REACTIONS (2)
  - Drug interaction [Recovered/Resolved]
  - Convulsion [Recovered/Resolved]
